FAERS Safety Report 4771548-5 (Version None)
Quarter: 2005Q3

REPORT INFORMATION
  Report Type: 
  Country: None (occurrence: None)
  Receive Date: 20050916
  Receipt Date: 20050902
  Transmission Date: 20060218
  Serious: Yes (Life-Threatening, Hospitalization)
  Sender: FDA-Public Use
  Company Number: US-BOEHRINGER INGELHEIM PHARMACEUTICALS, INC.-2005-BP-15551BP

PATIENT
  Sex: Male

DRUGS (4)
  1. TIPRANAVIR / RITONAVIR CAPSULES [Suspect]
     Indication: HIV INFECTION
     Dosage: TPVRTV: 1000/400 MG
     Route: 048
     Dates: start: 20050308
  2. FUZEON [Concomitant]
     Indication: HIV INFECTION
     Dosage: 90 MG BID
     Route: 030
     Dates: start: 20050308
  3. EPZICOM [Concomitant]
     Indication: HIV INFECTION
     Dosage: 1 QD
     Route: 048
     Dates: start: 20050126
  4. VIREAD [Concomitant]
     Indication: HIV INFECTION
     Dosage: 1 QD
     Route: 048
     Dates: start: 20050126

REACTIONS (3)
  - DIARRHOEA [None]
  - HYPOKALAEMIA [None]
  - VOMITING [None]
